FAERS Safety Report 4489246-4 (Version None)
Quarter: 2004Q4

REPORT INFORMATION
  Report Type: 
  Country: None (occurrence: None)
  Receive Date: 20041026
  Receipt Date: 20041018
  Transmission Date: 20050328
  Serious: Yes (Life-Threatening, Hospitalization, Other)
  Sender: FDA-Public Use
  Company Number: 2004079720

PATIENT
  Age: 33 Year
  Sex: Male
  Weight: 75 kg

DRUGS (5)
  1. SORTIS (ATORVASTATIN) [Suspect]
     Indication: HYPERLIPIDAEMIA
     Dosage: 40 MG (40 MG, 1 IN 1 D), ORAL
     Route: 048
     Dates: start: 20030601, end: 20040925
  2. CLOPIDOGREL BISULFATE [Suspect]
     Indication: ILL-DEFINED DISORDER
     Dosage: 75 MG (1 D), ORAL
     Route: 048
     Dates: start: 20040922
  3. LISINOPRIL [Suspect]
     Indication: ILL-DEFINED DISORDER
     Dosage: 5 MG (5 MG, 1 IN 1 D), ORAL
     Route: 048
     Dates: start: 20040922
  4. METOPROLOL SUCCINATE [Concomitant]
  5. ASPIRIN [Concomitant]

REACTIONS (5)
  - ARRHYTHMIA [None]
  - CARDIAC ARREST [None]
  - RHABDOMYOLYSIS [None]
  - STENT OCCLUSION [None]
  - VENTRICULAR FIBRILLATION [None]
